FAERS Safety Report 17213942 (Version 2)
Quarter: 2020Q1

REPORT INFORMATION
  Report Type: Spontaneous
  Country: US (occurrence: US)
  Receive Date: 20191230
  Receipt Date: 20200331
  Transmission Date: 20200409
  Serious: No
  Sender: FDA-Public Use
  Company Number: US-PFIZER INC-2019554757

PATIENT
  Age: 38 Year
  Sex: Male
  Weight: 98.43 kg

DRUGS (3)
  1. LYRICA [Suspect]
     Active Substance: PREGABALIN
     Indication: FIBROMYALGIA
     Dosage: 150 MG, 2X/DAY(TWO 150MG A DAY; ONE IN THE MORNING AND ONE AT NIGHT   )
     Dates: start: 2018
  2. LYRICA [Suspect]
     Active Substance: PREGABALIN
     Dosage: 150 MG, 2X/DAY(TAKE TWO AT NIGHT TIME , AND ONE IN THE MORNING)
  3. TRAZODONE [Concomitant]
     Active Substance: TRAZODONE HYDROCHLORIDE
     Dosage: 50 MG, UNK

REACTIONS (4)
  - Back pain [Unknown]
  - Insomnia [Recovering/Resolving]
  - Headache [Unknown]
  - Neck pain [Unknown]
